FAERS Safety Report 18894390 (Version 1)
Quarter: 2021Q1

REPORT INFORMATION
  Report Type: Report from Study
  Country: FR (occurrence: FR)
  Receive Date: 20210215
  Receipt Date: 20210215
  Transmission Date: 20210420
  Serious: Yes (Death, Hospitalization, Other)
  Sender: FDA-Public Use
  Company Number: FR-TAKEDA-2021TUS008680

PATIENT
  Sex: Male
  Weight: 79 kg

DRUGS (2)
  1. CARFILZOMIB [Suspect]
     Active Substance: CARFILZOMIB
     Indication: PLASMA CELL MYELOMA
     Dosage: 70 MILLIGRAM/KILOGRAM
     Route: 065
     Dates: start: 20200601, end: 20200902
  2. IXAZOMIB [Suspect]
     Active Substance: IXAZOMIB
     Indication: PLASMA CELL MYELOMA
     Dosage: 3 MILLIGRAM
     Route: 065
     Dates: start: 20180410

REACTIONS (5)
  - Calculus bladder [Recovered/Resolved]
  - Bladder mass [Recovered/Resolved]
  - Hypertension [Recovered/Resolved]
  - Death [Fatal]
  - Radius fracture [Recovered/Resolved]

NARRATIVE: CASE EVENT DATE: 20190304
